FAERS Safety Report 6739759-7 (Version None)
Quarter: 2010Q2

REPORT INFORMATION
  Report Type: 
  Country: None (occurrence: None)
  Receive Date: 20100525
  Receipt Date: 20100519
  Transmission Date: 20101027
  Serious: Yes (Death)
  Sender: FDA-Public Use
  Company Number: US-MEDIMMUNE-MEDI-0011199

PATIENT
  Sex: Female
  Weight: 7.854 kg

DRUGS (1)
  1. SYNAGIS [Suspect]
     Dates: start: 20091101, end: 20091101

REACTIONS (1)
  - DEATH [None]
